FAERS Safety Report 9279696 (Version 5)
Quarter: 2013Q4

REPORT INFORMATION
  Report Type: Spontaneous
  Country: US (occurrence: US)
  Receive Date: 20130509
  Receipt Date: 20131108
  Transmission Date: 20140711
  Serious: No
  Sender: FDA-Public Use
  Company Number: US-009507513-1305USA003392

PATIENT
  Age: 56 Year
  Sex: Female
  Weight: 77.98 kg

DRUGS (13)
  1. PEGINTRON [Suspect]
     Indication: HEPATITIS C
     Dosage: 120MICROGRAM/0.5ML, QW, REDIPEN
     Route: 058
     Dates: start: 20130427, end: 20131019
  2. REBETOL [Suspect]
     Indication: HEPATITIS C
     Dosage: UNK
     Dates: start: 20130504
  3. TELAPREVIR [Suspect]
     Indication: HEPATITIS C
     Dosage: UNK
     Dates: start: 20130504
  4. MUCINEX D [Concomitant]
     Dosage: 120-1200 UNITS UNSPECIFIED
  5. OMEPRAZOLE [Concomitant]
     Dosage: UNK
  6. ZIAC [Concomitant]
     Dosage: 5-6.25MG
  7. SYMBICORT [Concomitant]
     Dosage: FORMULATION: AER, STRENGTH: 160-4.5 UNITS UNSPECIFIED
  8. VENTOLIN HFA [Concomitant]
     Dosage: FORMULATION: AER
  9. TRAMADOL HYDROCHLORIDE [Concomitant]
     Dosage: UNK
  10. KLONOPIN [Concomitant]
     Dosage: UNK
  11. FAMVIR [Concomitant]
     Dosage: UNK
  12. ARIMIDEX [Concomitant]
     Dosage: UNK
  13. TRYPTANOL [Concomitant]
     Route: 048

REACTIONS (16)
  - Pain [Unknown]
  - Influenza [Recovering/Resolving]
  - Feeling abnormal [Recovering/Resolving]
  - Parosmia [Unknown]
  - Headache [Recovering/Resolving]
  - Fatigue [Unknown]
  - Headache [Unknown]
  - Nausea [Unknown]
  - Malaise [Unknown]
  - Diarrhoea [Unknown]
  - Bone pain [Unknown]
  - Movement disorder [Unknown]
  - Influenza like illness [Unknown]
  - Pain in extremity [Unknown]
  - Blood glucose decreased [Unknown]
  - Haemoglobin decreased [Unknown]
